FAERS Safety Report 9868166 (Version 1)
Quarter: 2014Q1

REPORT INFORMATION
  Report Type: Spontaneous
  Country: GB (occurrence: GB)
  Receive Date: 20140204
  Receipt Date: 20140204
  Transmission Date: 20141002
  Serious: Yes (Hospitalization, Other)
  Sender: FDA-Public Use
  Company Number: ALCN2014GB000867

PATIENT
  Sex: Male

DRUGS (2)
  1. FLUORESCEIN SODIUM [Suspect]
     Indication: ANGIOGRAM
     Dosage: 4 ML, ONCE/SINGLE
     Route: 042
     Dates: start: 20140113, end: 20140113
  2. INDOCYANINE GREEN [Suspect]
     Indication: ANGIOGRAM
     Dosage: 4 ML, ONCE/SINGLE
     Route: 042
     Dates: start: 20140113, end: 20140113

REACTIONS (3)
  - Vomiting [Recovered/Resolved]
  - Cough [Recovered/Resolved]
  - Throat irritation [Recovered/Resolved]
